FAERS Safety Report 4840582-9 (Version None)
Quarter: 2005Q4

REPORT INFORMATION
  Report Type: 
  Country: None (occurrence: None)
  Receive Date: 20051130
  Receipt Date: 20051026
  Transmission Date: 20060501
  Serious: No
  Sender: FDA-Public Use
  Company Number: US-BRISTOL-MYERS SQUIBB COMPANY-13158662

PATIENT
  Age: 71 Year
  Sex: Male

DRUGS (5)
  1. ERBITUX [Suspect]
     Indication: COLON CANCER
     Route: 042
  2. CARBOPLATIN [Concomitant]
     Dosage: ADMINISTERED IN CONJUNCTION WITH CETUXIMAB.
     Route: 042
  3. TAXOL [Concomitant]
     Dosage: ADMINISTERED IN CONJUNCTION WITH CETUXIMAB.
     Route: 042
  4. BENADRYL [Concomitant]
     Indication: PREMEDICATION
     Route: 042
  5. TYLENOL [Concomitant]
     Indication: PREMEDICATION
     Route: 048

REACTIONS (1)
  - EXTRAVASATION [None]
